FAERS Safety Report 8608275 (Version 13)
Quarter: 2014Q2

REPORT INFORMATION
  Report Type: Report from Study
  Country: US (occurrence: US)
  Receive Date: 20120611
  Receipt Date: 20140613
  Transmission Date: 20141212
  Serious: Yes (Death, Hospitalization)
  Sender: FDA-Public Use
  Company Number: PHHO2012US008171

PATIENT
  Age: 74 Year
  Sex: Female
  Weight: 62.31 kg

DRUGS (15)
  1. ICL670A [Suspect]
     Indication: IRON OVERLOAD
     Dosage: 2000 MG, UNK
     Route: 048
     Dates: start: 20111101, end: 20120519
  2. ICL670A [Suspect]
     Dosage: 2000 MG, UNK
     Route: 048
     Dates: end: 20121117
  3. SPIRIVA [Concomitant]
     Indication: CHRONIC OBSTRUCTIVE PULMONARY DISEASE
  4. LISINOPRIL [Concomitant]
     Indication: HYPERTENSION
     Dosage: 20 MG, UNK
     Dates: start: 20120415
  5. MIRALAX [Concomitant]
     Indication: CONSTIPATION
     Dates: start: 20120209
  6. SENNA [Concomitant]
     Indication: CONSTIPATION
     Dates: start: 20120517
  7. ONDANSETRON [Concomitant]
     Indication: NAUSEA
     Dates: start: 20120517
  8. TRAVATAN [Concomitant]
  9. AMLODIPINE [Concomitant]
     Dosage: 5 MG, UNK
     Route: 048
  10. ASPIRIN [Concomitant]
     Dosage: 81 MG, QD
  11. FLUOXETINE [Concomitant]
  12. CALCIUM + VIT D [Concomitant]
  13. NITROGLYCERIN [Concomitant]
  14. ZOFRAN [Concomitant]
  15. SENOKOT                                 /UNK/ [Concomitant]

REACTIONS (6)
  - Intestinal obstruction [Recovered/Resolved]
  - Constipation [Recovered/Resolved]
  - Sepsis [Fatal]
  - Cholecystitis [Fatal]
  - Presyncope [Fatal]
  - Hyponatraemia [Fatal]
